FAERS Safety Report 6149775-4 (Version None)
Quarter: 2009Q2

REPORT INFORMATION
  Report Type: 
  Country: None (occurrence: None)
  Receive Date: 20090409
  Receipt Date: 20090401
  Transmission Date: 20091009
  Serious: Yes (Hospitalization)
  Sender: FDA-Public Use
  Company Number: GR-BAXTER-2008BH003308

PATIENT
  Age: 54 Year
  Sex: Female

DRUGS (9)
  1. ENDOXAN BAXTER [Suspect]
     Indication: BREAST CANCER
     Route: 042
     Dates: start: 20070710
  2. EPIRUBICIN [Suspect]
     Indication: BREAST CANCER
     Dosage: DOSE UNIT:UNKNOWN
     Route: 042
     Dates: start: 20070710
  3. METHOTREXATE [Suspect]
     Indication: BREAST CANCER
     Route: 042
     Dates: start: 20070710
  4. FLUOROURACIL [Suspect]
     Indication: BREAST CANCER
     Route: 042
     Dates: start: 20070710
  5. ZOFRON [Concomitant]
     Indication: PROPHYLAXIS
     Route: 042
  6. ZANTAC [Concomitant]
     Indication: PROPHYLAXIS
     Route: 042
  7. FENISTIL [Concomitant]
     Indication: PROPHYLAXIS
     Route: 042
  8. DEXAMETHASONE 4MG TAB [Concomitant]
     Indication: PROPHYLAXIS
     Route: 042
  9. NEULASTA [Concomitant]
     Indication: DRUG USE FOR UNKNOWN INDICATION
     Route: 065

REACTIONS (2)
  - GASTROINTESTINAL INFECTION [None]
  - PYREXIA [None]
